FAERS Safety Report 10058644 (Version 1)
Quarter: 2014Q2

REPORT INFORMATION
  Report Type: Spontaneous
  Country: JP (occurrence: None)
  Receive Date: 20140402
  Receipt Date: 20140402
  Transmission Date: 20141212
  Serious: Yes (Hospitalization)
  Sender: FDA-Public Use
  Company Number: 1999002708-FJ

PATIENT
  Age: 11 Year
  Sex: Female
  Weight: 26.7 kg

DRUGS (19)
  1. TACROLIMUS CAPSULES [Suspect]
     Indication: PROPHYLAXIS AGAINST TRANSPLANT REJECTION
     Route: 048
  2. METHYLPREDNISOLONE (METHYLPREDNISOLONE) INJECTION [Concomitant]
  3. METHYLPREDNISOLONE (METHYLPREDNISOLONE) INJECTION [Concomitant]
  4. METHYLPREDNISOLONE (METHYLPREDNISOLONE) INJECTION [Concomitant]
  5. PREDONINE /00016201/(PREDNISOLONE) TABLET [Concomitant]
  6. PREDONINE /00016201/(PREDNISOLONE) TABLET [Concomitant]
  7. ZOVIRAX /00587301/(ACICLOVIR) [Concomitant]
  8. ANGINAL  /00042901/ (DIPYRIDAMOLE) [Concomitant]
  9. ANGINAL  /00042901/ (DIPYRIDAMOLE) [Concomitant]
  10. BACTRAMIN (SULFAMETHOXAZOLE, TRAIMETHOPRIM) [Concomitant]
  11. BACTRAMIN (SULFAMETHOXAZOLE, TRAIMETHOPRIM) [Concomitant]
  12. GRAN (FILGRASTIM) INJECTION [Concomitant]
  13. FLUMARIN /00963302/ (FLOMOXEF SODIUM) INJECTION [Concomitant]
  14. VICCILLIN /00000502/ (AMPICILLIN SODIUM) INJECTION [Concomitant]
  15. GASTER (FAMOTIDINE) INJECTION 20 MG [Concomitant]
  16. TIENAM (CILASTATIN SODIUM, IMIPENEM) INJECTION [Concomitant]
  17. UFT (TEGAFUR, URACIL) [Concomitant]
  18. URSO /00465701/ (URSODEOXYCHOLIC ACID) [Concomitant]
  19. CORTICOSTEROID NOS (CORTICOSTEROID NOS) INHALATION [Concomitant]

REACTIONS (4)
  - Duodenal ulcer [None]
  - Blood urine present [None]
  - Asthma [None]
  - Blood magnesium decreased [None]
